FAERS Safety Report 4882704-X (Version None)
Quarter: 2005Q4

REPORT INFORMATION
  Report Type: 
  Country: None (occurrence: None)
  Receive Date: 20051201
  Receipt Date: 20050920
  Transmission Date: 20060501
  Serious: No
  Sender: FDA-Public Use
  Company Number: 2005PV002244

PATIENT
  Sex: Male

DRUGS (4)
  1. BYETTA [Suspect]
     Indication: DIABETES MELLITUS NON-INSULIN-DEPENDENT
     Dosage: 10 MCG; UNKNOWN; SC
     Route: 058
     Dates: start: 20050801, end: 20050805
  2. 32 VARIOUS SUPPLEMENTS [Concomitant]
  3. NUTRITION DRINKS [Concomitant]
  4. INSULIN NOVO [Concomitant]

REACTIONS (8)
  - ABDOMINAL DISTENSION [None]
  - ABDOMINAL PAIN UPPER [None]
  - ASTHENIA [None]
  - DECREASED APPETITE [None]
  - LISTLESS [None]
  - NAUSEA [None]
  - SOMNOLENCE [None]
  - VOMITING [None]
